FAERS Safety Report 4570623-8 (Version None)
Quarter: 2005Q1

REPORT INFORMATION
  Report Type: 
  Country: None (occurrence: None)
  Receive Date: 20050202
  Receipt Date: 20040128
  Transmission Date: 20050727
  Serious: Yes (Hospitalization)
  Sender: FDA-Public Use
  Company Number: 2005UW01494

PATIENT
  Sex: Female

DRUGS (1)
  1. BUPIVACAINE [Suspect]
     Dosage: 15 MG DAILY IT
     Route: 037
     Dates: start: 20030730, end: 20030730

REACTIONS (2)
  - ENCEPHALITIS [None]
  - PARAPLEGIA [None]
